FAERS Safety Report 4410624-3 (Version None)
Quarter: 2004Q3

REPORT INFORMATION
  Report Type: 
  Country: None (occurrence: None)
  Receive Date: 20040726
  Receipt Date: 20040712
  Transmission Date: 20050211
  Serious: Yes (Hospitalization)
  Sender: FDA-Public Use
  Company Number: 2004048514

PATIENT
  Age: 73 Year
  Sex: Female

DRUGS (8)
  1. AMLODIPINE [Suspect]
     Indication: ESSENTIAL HYPERTENSION
     Dosage: 5 MG (5 MG, 1 IN 1 D), ORAL
     Route: 048
     Dates: end: 20040506
  2. CYCLOSPORINE [Suspect]
     Indication: RENAL TRANSPLANT
     Dosage: 100 MG (1 IN 1 D), ORAL
     Route: 048
  3. CALCITRIOL [Concomitant]
  4. ATORVASTATIN (ATORVASTATIN) [Concomitant]
  5. PREDNISOLONE SODIUM SULFOBENZOATE (PREDNISOLONE SODIUM SULFOBENZOATE) [Suspect]
     Indication: RENAL TRANSPLANT
     Dosage: 5 MG (5 MG, 1 IN 1 D), ORAL
     Route: 048
  6. SIROLIMUS (SIROLIMUS) [Suspect]
     Indication: RENAL TRANSPLANT
     Dosage: 5 MG (1 IN 1 D), ORAL
     Route: 048
     Dates: start: 20040331, end: 20040427
  7. CALCITRIOL [Concomitant]
  8. ATORVASTATIN (ATORVASTATIN) [Concomitant]

REACTIONS (7)
  - BLOOD ALBUMIN DECREASED [None]
  - CYTOLYTIC HEPATITIS [None]
  - DRUG INTOLERANCE [None]
  - LUNG DISORDER [None]
  - OEDEMA PERIPHERAL [None]
  - PROTEINURIA [None]
  - RASH [None]
